FAERS Safety Report 25031296 (Version 1)
Quarter: 2025Q1

REPORT INFORMATION
  Report Type: Spontaneous
  Country: US (occurrence: None)
  Receive Date: 20250228
  Receipt Date: 20250228
  Transmission Date: 20250409
  Serious: Yes (Life-Threatening, Hospitalization, Other)
  Sender: FDA-CTU
  Company Number: None

PATIENT
  Age: 82 Year
  Sex: Female
  Weight: 63.6 kg

DRUGS (21)
  1. KEYTRUDA [Suspect]
     Active Substance: PEMBROLIZUMAB
     Indication: Transitional cell carcinoma
     Route: 040
     Dates: start: 20240901, end: 20250101
  2. ABATACEPT [Concomitant]
     Active Substance: ABATACEPT
  3. ACETAMINOPHEN [Concomitant]
     Active Substance: ACETAMINOPHEN
  4. AMPICILLIN SODIUM\SULBACTAM SODIUM [Concomitant]
     Active Substance: AMPICILLIN SODIUM\SULBACTAM SODIUM
  5. BISACODYL [Concomitant]
     Active Substance: BISACODYL
  6. CALCIUM GLUCONATE [Concomitant]
     Active Substance: CALCIUM GLUCONATE
  7. DEXMEDETOMIDINE [Concomitant]
     Active Substance: DEXMEDETOMIDINE
  8. ENOXAPARIN [Concomitant]
     Active Substance: ENOXAPARIN
  9. FENTANYL [Concomitant]
     Active Substance: FENTANYL
  10. FUROSEMIDE [Concomitant]
     Active Substance: FUROSEMIDE
  11. HEPARIN [Concomitant]
     Active Substance: HEPARIN SODIUM
  12. INSULIN ASPART [Concomitant]
     Active Substance: INSULIN ASPART
  13. ALBUTEROL\IPRATROPIUM [Concomitant]
     Active Substance: ALBUTEROL\IPRATROPIUM
  14. LANSOPRAZOLE [Concomitant]
     Active Substance: LANSOPRAZOLE
  15. LEVOTHYROXINE [Concomitant]
     Active Substance: LEVOTHYROXINE
  16. methylPREDNISolone sodium succinate (PF) [Concomitant]
  17. NOREPINEPHRINE [Concomitant]
     Active Substance: NOREPINEPHRINE
  18. POTASSIUM CHLORIDE [Concomitant]
     Active Substance: POTASSIUM CHLORIDE
  19. QUETIAPINE [Concomitant]
     Active Substance: QUETIAPINE
  20. SERTRALINE [Concomitant]
     Active Substance: SERTRALINE HYDROCHLORIDE
  21. POLYVINYL ALCOHOL [Concomitant]
     Active Substance: POLYVINYL ALCOHOL

REACTIONS (6)
  - Dysphagia [None]
  - Respiratory distress [None]
  - Muscular weakness [None]
  - Eyelid ptosis [None]
  - Blood creatine phosphokinase increased [None]
  - Myopathy [None]

NARRATIVE: CASE EVENT DATE: 20250212
